FAERS Safety Report 9688353 (Version 1)
Quarter: 2013Q4

REPORT INFORMATION
  Report Type: Spontaneous
  Country: IL (occurrence: IL)
  Receive Date: 20131114
  Receipt Date: 20131114
  Transmission Date: 20140711
  Serious: Yes (Other)
  Sender: FDA-Public Use
  Company Number: PHHY2013IL129517

PATIENT
  Sex: Male

DRUGS (2)
  1. RITALIN [Suspect]
     Dosage: UNK UKN, UNK
  2. ALCOHOL [Suspect]
     Dosage: UNK UKN, UNK

REACTIONS (1)
  - Lower limb fracture [Unknown]
